FAERS Safety Report 20659080 (Version 1)
Quarter: 2022Q1

REPORT INFORMATION
  Report Type: Spontaneous
  Country: US (occurrence: None)
  Receive Date: 20220330
  Receipt Date: 20220330
  Transmission Date: 20220424
  Serious: Yes (Other)
  Sender: FDA-Public Use
  Company Number: None

PATIENT
  Age: 61 Year
  Sex: Male
  Weight: 48.99 kg

DRUGS (11)
  1. FIRDAPSE [Suspect]
     Active Substance: AMIFAMPRIDINE PHOSPHATE
     Indication: Product used for unknown indication
     Dosage: 4 TIMES A DAY BY MOUTH?
     Route: 048
     Dates: start: 20220303
  2. MEST [Concomitant]
  3. NON [Concomitant]
  4. FIRDAPSE [Concomitant]
     Active Substance: AMIFAMPRIDINE PHOSPHATE
  5. METHADONE HYDROCHLORIDE [Concomitant]
     Active Substance: METHADONE HYDROCHLORIDE
  6. BI PAP MACHINE [Concomitant]
  7. VITAMIN B12 [Concomitant]
     Active Substance: CYANOCOBALAMIN
  8. IRON [Concomitant]
     Active Substance: IRON
  9. VITAMINS [Concomitant]
     Active Substance: VITAMINS
  10. VITAMIN D3 [Concomitant]
     Active Substance: CHOLECALCIFEROL
  11. CAIM FOR SLEEP [Concomitant]

REACTIONS (13)
  - Abdominal pain upper [None]
  - Pain [None]
  - Drug ineffective [None]
  - Loss of personal independence in daily activities [None]
  - Gait disturbance [None]
  - Quality of life decreased [None]
  - Product complaint [None]
  - Hypoaesthesia [None]
  - Paraesthesia [None]
  - Vomiting [None]
  - Abdominal pain upper [None]
  - Muscular weakness [None]
  - Gait disturbance [None]
